FAERS Safety Report 7700854-7 (Version None)
Quarter: 2011Q3

REPORT INFORMATION
  Report Type: 
  Country: None (occurrence: None)
  Receive Date: 20110711
  Receipt Date: 20110608
  Transmission Date: 20111222
  Serious: Yes (Other)
  Sender: FDA-Public Use
  Company Number: IPC201106-001693

PATIENT
  Sex: Female

DRUGS (4)
  1. METOCLOPRAMIDE HYDROCHLORIDE [Suspect]
     Indication: ABDOMINAL DISTENSION
     Dosage: ORAL
     Route: 048
  2. METOCLOPRAMIDE HYDROCHLORIDE [Suspect]
     Indication: DYSPEPSIA
     Dosage: ORAL
     Route: 048
  3. REGLAN [Suspect]
     Indication: DYSPEPSIA
     Dosage: ORAL
     Route: 048
  4. REGLAN [Suspect]
     Indication: ABDOMINAL DISTENSION
     Dosage: ORAL
     Route: 048

REACTIONS (1)
  - TARDIVE DYSKINESIA [None]
